FAERS Safety Report 7479211-7 (Version None)
Quarter: 2011Q2

REPORT INFORMATION
  Report Type: 
  Country: None (occurrence: None)
  Receive Date: 20110513
  Receipt Date: 20110506
  Transmission Date: 20111010
  Serious: Yes (Hospitalization)
  Sender: FDA-Public Use
  Company Number: A0927039A

PATIENT
  Age: 62 Year
  Sex: Female
  Weight: 81.6 kg

DRUGS (8)
  1. MELPHALAN HYDROCHLORIDE [Suspect]
     Indication: AMYLOIDOSIS
     Dosage: 50MGM2 PER DAY
     Route: 042
     Dates: start: 20110304, end: 20110305
  2. TORSEMIDE [Concomitant]
  3. ALDACTONE [Concomitant]
  4. METOPROLOL SUCCINATE [Concomitant]
  5. CEFADROXIL [Concomitant]
  6. MAGNESIUM [Concomitant]
  7. LIPITOR [Concomitant]
  8. M.V.I. [Concomitant]

REACTIONS (4)
  - PNEUMONIA [None]
  - PLATELET COUNT DECREASED [None]
  - DYSPNOEA [None]
  - GASTROINTESTINAL HAEMORRHAGE [None]
